FAERS Safety Report 14257650 (Version 2)
Quarter: 2018Q1

REPORT INFORMATION
  Report Type: Spontaneous
  Country: AU (occurrence: AU)
  Receive Date: 20171207
  Receipt Date: 20180207
  Transmission Date: 20180508
  Serious: Yes (Other)
  Sender: FDA-Public Use
  Company Number: AU-JNJFOC-20171135945

PATIENT
  Sex: Male

DRUGS (2)
  1. REGAINE MEN [Suspect]
     Active Substance: MINOXIDIL
     Indication: PRODUCT USED FOR UNKNOWN INDICATION
     Route: 065
  2. REGAINE MEN [Suspect]
     Active Substance: MINOXIDIL
     Route: 065

REACTIONS (3)
  - Hypersensitivity [Unknown]
  - Subcutaneous abscess [Unknown]
  - Drug ineffective [Unknown]
